FAERS Safety Report 14832972 (Version 3)
Quarter: 2018Q2

REPORT INFORMATION
  Report Type: Spontaneous
  Country: US (occurrence: US)
  Receive Date: 20180501
  Receipt Date: 20180529
  Transmission Date: 20180711
  Serious: Yes (Death, Hospitalization)
  Sender: FDA-Public Use
  Company Number: US-FRESENIUS MEDICAL CARE RENAL THERAPIES GROUP-FMC-1804-000823

PATIENT
  Sex: Male
  Weight: 77 kg

DRUGS (7)
  1. ELIQUIS [Concomitant]
     Active Substance: APIXABAN
  2. SENSIPAR [Concomitant]
     Active Substance: CINACALCET HYDROCHLORIDE
  3. DELFLEX [Suspect]
     Active Substance: CALCIUM CHLORIDE\DEXTROSE\MAGNESIUM CHLORIDE\SODIUM CHLORIDE\SODIUM LACTATE
     Indication: END STAGE RENAL DISEASE
     Route: 033
     Dates: start: 201707
  4. CALCIUM ACETATE. [Concomitant]
     Active Substance: CALCIUM ACETATE
  5. CALCITRIOL. [Concomitant]
     Active Substance: CALCITRIOL
  6. AMIODARONE [Concomitant]
     Active Substance: AMIODARONE
  7. MEXILETINE [Concomitant]
     Active Substance: MEXILETINE

REACTIONS (6)
  - Peritonitis bacterial [Recovering/Resolving]
  - Cardiac arrest [Fatal]
  - Fluid overload [Recovering/Resolving]
  - Metabolic encephalopathy [Unknown]
  - Sepsis [Fatal]
  - Treatment noncompliance [Unknown]
